FAERS Safety Report 7971900-0 (Version None)
Quarter: 2011Q4

REPORT INFORMATION
  Report Type: 
  Country: None (occurrence: None)
  Receive Date: 20111212
  Receipt Date: 20111129
  Transmission Date: 20120403
  Serious: Yes (Other)
  Sender: FDA-Public Use
  Company Number: PHHY2011FR105449

PATIENT
  Age: 73 Year
  Sex: Male
  Weight: 82 kg

DRUGS (4)
  1. EZETIMIBE [Suspect]
     Dosage: 1 DF, QD
     Dates: start: 20050101
  2. METFORMIN HCL [Concomitant]
     Dosage: 1000 UG, TID
     Route: 048
     Dates: start: 19990101
  3. GLEEVEC [Suspect]
     Dosage: 400 MG, QD
     Route: 048
     Dates: start: 20091001, end: 20111105
  4. ASPIRIN [Concomitant]
     Dosage: 75 MG, QD
     Dates: start: 20090101

REACTIONS (6)
  - POLYNEUROPATHY [None]
  - VIBRATORY SENSE INCREASED [None]
  - PARAESTHESIA [None]
  - PAIN IN EXTREMITY [None]
  - CARPAL TUNNEL SYNDROME [None]
  - FATIGUE [None]
